FAERS Safety Report 18988848 (Version 2)
Quarter: 2021Q1

REPORT INFORMATION
  Report Type: Report from Study
  Country: None (occurrence: US)
  Receive Date: 20210309
  Receipt Date: 20210330
  Transmission Date: 20210420
  Serious: Yes (Hospitalization, Other)
  Sender: FDA-Public Use
  Company Number: US-ABBVIE-21K-163-3756825-00

PATIENT
  Age: 73 Year
  Sex: Male
  Weight: 122.58 kg

DRUGS (6)
  1. HUMIRA [Suspect]
     Active Substance: ADALIMUMAB
     Indication: UVEITIS
  2. METHOTREXATE. [Concomitant]
     Active Substance: METHOTREXATE
     Indication: PRODUCT USED FOR UNKNOWN INDICATION
  3. COVID?19 VACCINE [Concomitant]
     Indication: COVID-19 IMMUNISATION
     Dosage: MODERNA
     Route: 030
     Dates: start: 202102, end: 202102
  4. COVID?19 VACCINE [Concomitant]
     Dosage: MODERNA
     Route: 030
     Dates: start: 202103, end: 202103
  5. PREDNISONE. [Concomitant]
     Active Substance: PREDNISONE
     Indication: PRODUCT USED FOR UNKNOWN INDICATION
  6. HUMIRA [Suspect]
     Active Substance: ADALIMUMAB
     Indication: RHEUMATOID ARTHRITIS
     Dosage: CITRATE FREE
     Route: 058
     Dates: start: 2018, end: 2018

REACTIONS (14)
  - Hypertension [Not Recovered/Not Resolved]
  - Head injury [Unknown]
  - Blood pressure decreased [Unknown]
  - Fall [Unknown]
  - Drug ineffective [Not Recovered/Not Resolved]
  - Animal bite [Recovering/Resolving]
  - Loss of consciousness [Unknown]
  - Hallucination [Recovering/Resolving]
  - Dizziness [Not Recovered/Not Resolved]
  - Hand fracture [Unknown]
  - Basal cell carcinoma [Recovering/Resolving]
  - Liver disorder [Not Recovered/Not Resolved]
  - Paralysis [Unknown]
  - Confusional state [Unknown]

NARRATIVE: CASE EVENT DATE: 201807
